FAERS Safety Report 20658938 (Version 1)
Quarter: 2022Q1

REPORT INFORMATION
  Report Type: Spontaneous
  Country: US (occurrence: None)
  Receive Date: 20220331
  Receipt Date: 20220331
  Transmission Date: 20220423
  Serious: Yes (Hospitalization, Disabling, Other)
  Sender: FDA-Public Use
  Company Number: None

PATIENT
  Sex: Female

DRUGS (2)
  1. GEODON [Suspect]
     Active Substance: ZIPRASIDONE HYDROCHLORIDE\ZIPRASIDONE MESYLATE
  2. PROZAC [Suspect]
     Active Substance: FLUOXETINE HYDROCHLORIDE

REACTIONS (7)
  - Tardive dyskinesia [None]
  - Obsessive-compulsive disorder [None]
  - Anhedonia [None]
  - Blindness [None]
  - Facial spasm [None]
  - Impaired work ability [None]
  - Fatigue [None]

NARRATIVE: CASE EVENT DATE: 20190901
